FAERS Safety Report 5732429-3 (Version None)
Quarter: 2008Q2

REPORT INFORMATION
  Report Type: 
  Country: None (occurrence: None)
  Receive Date: 20080508
  Receipt Date: 20080428
  Transmission Date: 20081010
  Serious: Yes (Congenital Anomaly)
  Sender: FDA-Public Use
  Company Number: GB-ABBOTT-05P-167-0311360-00

PATIENT
  Sex: Female
  Weight: 2.8 kg

DRUGS (1)
  1. VALPROIC ACID [Suspect]
     Indication: DRUG EXPOSURE DURING PREGNANCY

REACTIONS (26)
  - ABNORMAL BEHAVIOUR [None]
  - CLINODACTYLY [None]
  - COGNITIVE DISORDER [None]
  - CONGENITAL EYELID MALFORMATION [None]
  - CONGENITAL HAIR DISORDER [None]
  - CONGENITAL HAND MALFORMATION [None]
  - CONGENITAL NOSE MALFORMATION [None]
  - DERMATILLOMANIA [None]
  - DISTURBANCE IN ATTENTION [None]
  - DRUG EXPOSURE DURING PREGNANCY [None]
  - DYSMORPHISM [None]
  - DYSPHONIA [None]
  - EXPRESSIVE LANGUAGE DISORDER [None]
  - FINE MOTOR DELAY [None]
  - FOETAL ANTICONVULSANT SYNDROME [None]
  - FOOT DEFORMITY [None]
  - HYPOTONIA [None]
  - LEARNING DISABILITY [None]
  - LIGAMENT LAXITY [None]
  - LIP DISORDER [None]
  - MICROCEPHALY [None]
  - NEURODEVELOPMENTAL DISORDER [None]
  - PROMINENT EPICANTHAL FOLDS [None]
  - RASH PAPULAR [None]
  - SKULL MALFORMATION [None]
  - SPEECH DISORDER DEVELOPMENTAL [None]
